FAERS Safety Report 20480290 (Version 1)
Quarter: 2022Q1

REPORT INFORMATION
  Report Type: Spontaneous
  Country: DE (occurrence: DE)
  Receive Date: 20220216
  Receipt Date: 20220216
  Transmission Date: 20220423
  Serious: Yes (Life-Threatening, Other)
  Sender: FDA-Public Use
  Company Number: DE-Accord-251958

PATIENT
  Age: 66 Year
  Sex: Male
  Weight: 71.8 kg

DRUGS (5)
  1. GEMTUZUMAB OZOGAMICIN [Suspect]
     Active Substance: GEMTUZUMAB OZOGAMICIN
     Dosage: 5 MG, SINGLE
     Route: 042
     Dates: start: 20211019, end: 20211019
  2. DAUNORUBICIN HYDROCHLORIDE [Suspect]
     Active Substance: DAUNORUBICIN HYDROCHLORIDE
     Dosage: 60 MG/M2
     Route: 042
     Dates: start: 20211019, end: 20211021
  3. GLASDEGIB [Suspect]
     Active Substance: GLASDEGIB
     Dates: start: 20211126, end: 20211208
  4. CYTARABINE [Suspect]
     Active Substance: CYTARABINE
     Dosage: 1000 MG
     Route: 042
     Dates: start: 20211019, end: 20211026
  5. POSACONAZOLE [Concomitant]
     Active Substance: POSACONAZOLE
     Dates: start: 20211016, end: 20211026

REACTIONS (1)
  - Febrile neutropenia [Recovered/Resolved]

NARRATIVE: CASE EVENT DATE: 20211026
